FAERS Safety Report 19112091 (Version 1)
Quarter: 2021Q2

REPORT INFORMATION
  Report Type: Spontaneous
  Country: US (occurrence: US)
  Receive Date: 20210409
  Receipt Date: 20210409
  Transmission Date: 20210717
  Serious: Yes (Hospitalization)
  Sender: FDA-Public Use
  Company Number: None

PATIENT
  Age: 65 Year
  Sex: Male

DRUGS (1)
  1. ENOXAPARIN (GENERIC) (ENOXAPARIN 120MG/0.8ML INJ,SYRINGE,0.8ML(GENERIC)) [Suspect]
     Active Substance: ENOXAPARIN SODIUM
     Dates: start: 20210313, end: 20210322

REACTIONS (3)
  - Anaemia [None]
  - Haemorrhage [None]
  - Acute kidney injury [None]

NARRATIVE: CASE EVENT DATE: 20210323
